FAERS Safety Report 8058045-9 (Version None)
Quarter: 2012Q1

REPORT INFORMATION
  Report Type: 
  Country: None (occurrence: None)
  Receive Date: 20120117
  Receipt Date: 20120117
  Transmission Date: 20120608
  Serious: No
  Sender: FDA-Public Use
  Company Number: None

PATIENT
  Age: 86 Year
  Sex: Female
  Weight: 63.9572 kg

DRUGS (2)
  1. ZICAM [Suspect]
     Indication: UPPER RESPIRATORY TRACT INFECTION
     Dates: start: 20111101
  2. ZICAM [Suspect]
     Indication: NASOPHARYNGITIS
     Dates: start: 20111101

REACTIONS (2)
  - HYPOTENSION [None]
  - TACHYCARDIA [None]
